FAERS Safety Report 6662454-X (Version None)
Quarter: 2010Q1

REPORT INFORMATION
  Report Type: 
  Country: None (occurrence: None)
  Receive Date: 20100329
  Receipt Date: 20100316
  Transmission Date: 20100710
  Serious: Yes (Other)
  Sender: FDA-Public Use
  Company Number: RB-04759-2010

PATIENT

DRUGS (2)
  1. SUBOXONE [Suspect]
     Indication: DRUG DEPENDENCE
     Dosage: 28 MG TRANSPLACENTAL, 28 MG TRANSPLACENTAL
     Route: 064
     Dates: start: 20090321, end: 20090428
  2. SUBUTEX [Suspect]
     Indication: DRUG DEPENDENCE
     Dosage: 28 MG TRANSPLACENTAL
     Route: 064
     Dates: start: 20090429

REACTIONS (2)
  - MATERNAL DRUGS AFFECTING FOETUS [None]
  - PREMATURE BABY [None]
